FAERS Safety Report 16340122 (Version 2)
Quarter: 2019Q3

REPORT INFORMATION
  Report Type: Report from Study
  Country: None (occurrence: US)
  Receive Date: 20190522
  Receipt Date: 20190816
  Transmission Date: 20191004
  Serious: Yes (Hospitalization, Other)
  Sender: FDA-Public Use
  Company Number: US-ABBVIE-19K-163-2744885-00

PATIENT
  Age: 58 Year
  Sex: Male
  Weight: 93.07 kg

DRUGS (5)
  1. HUMIRA [Suspect]
     Active Substance: ADALIMUMAB
     Dosage: DURATION 2 MONTHS
     Route: 058
     Dates: start: 2016
  2. HUMIRA [Suspect]
     Active Substance: ADALIMUMAB
     Route: 058
     Dates: start: 201903, end: 201904
  3. HUMIRA [Suspect]
     Active Substance: ADALIMUMAB
     Route: 058
     Dates: start: 201904
  4. AMLODIPINE BESYLATE. [Concomitant]
     Active Substance: AMLODIPINE BESYLATE
     Indication: HYPERTENSION
  5. HUMIRA [Suspect]
     Active Substance: ADALIMUMAB
     Indication: PSORIASIS
     Route: 058
     Dates: start: 2012, end: 201511

REACTIONS (14)
  - Colon cancer [Recovered/Resolved]
  - Pneumonia [Recovered/Resolved]
  - Pruritus [Recovering/Resolving]
  - Bronchitis [Recovered/Resolved]
  - Hernia [Not Recovered/Not Resolved]
  - Skin infection [Recovered/Resolved]
  - Pseudomonas infection [Recovered/Resolved]
  - Cellulitis [Recovered/Resolved]
  - Postoperative wound infection [Recovered/Resolved]
  - Atrial fibrillation [Not Recovered/Not Resolved]
  - Staphylococcal infection [Recovered/Resolved]
  - Impaired healing [Unknown]
  - Skin discolouration [Recovered/Resolved]
  - Muscle discomfort [Not Recovered/Not Resolved]

NARRATIVE: CASE EVENT DATE: 201510
